FAERS Safety Report 5944226-4 (Version None)
Quarter: 2008Q4

REPORT INFORMATION
  Report Type: 
  Country: None (occurrence: None)
  Receive Date: 20081104
  Receipt Date: 20081024
  Transmission Date: 20090506
  Serious: Yes (Hospitalization, Other)
  Sender: FDA-Public Use
  Company Number: 2008SP022018

PATIENT
  Age: 57 Year
  Sex: Male

DRUGS (2)
  1. PEGINTERFERON ALFA-2B (S-P) [Suspect]
     Indication: HEPATITIS C
     Dosage: 150 MCG; QW; SC
     Route: 058
  2. RIBAVIRIN [Suspect]
     Indication: HEPATITIS C
     Dosage: 600 MG; BID; PO
     Route: 048

REACTIONS (13)
  - AUTONOMIC NERVOUS SYSTEM IMBALANCE [None]
  - DEAFNESS [None]
  - DEAFNESS NEUROSENSORY [None]
  - DIARRHOEA [None]
  - DIZZINESS [None]
  - HAEMOLYTIC ANAEMIA [None]
  - HYPERTENSION [None]
  - HYPOKALAEMIA [None]
  - NAUSEA [None]
  - ORTHOSTATIC HYPOTENSION [None]
  - TINNITUS [None]
  - VERTIGO [None]
  - VOMITING [None]
